FAERS Safety Report 6327572 (Version 3)
Quarter: 2017Q1

REPORT INFORMATION
  Report Type: Spontaneous
  Country: US (occurrence: US)
  Receive Date: 20070606
  Receipt Date: 20170117
  Transmission Date: 20170429
  Serious: Yes (Other)
  Sender: FDA-Public Use
  Company Number: US-ASTRAZENECA-2003UW00061

PATIENT
  Age: 77 Year
  Sex: Female
  Weight: 64.9 kg

DRUGS (16)
  1. TOPROL XL [Suspect]
     Active Substance: METOPROLOL SUCCINATE
     Indication: HYPERTENSION
     Dosage: 12.5 MG, IN MORNING AND IN THE EVENING
     Route: 048
     Dates: start: 20161222
  2. ASA [Concomitant]
     Active Substance: ASPIRIN
     Indication: ANTICOAGULANT THERAPY
     Route: 048
  3. TOPROL XL [Suspect]
     Active Substance: METOPROLOL SUCCINATE
     Indication: ATRIAL FIBRILLATION
     Dosage: 50 MG IN AM AND 25 MG PM
     Route: 048
     Dates: start: 20020913, end: 201612
  4. METROPROLOL [Suspect]
     Active Substance: METOPROLOL
     Indication: ATRIAL FIBRILLATION
     Dosage: GENERIC METOPROLOL, 25 MG, AS NEEDED
     Route: 048
  5. TOPROL XL [Suspect]
     Active Substance: METOPROLOL SUCCINATE
     Indication: ATRIAL FIBRILLATION
     Dosage: 12.5 MG, IN MORNING AND IN THE EVENING
     Route: 048
     Dates: start: 20161222
  6. MVI WITH IRON [Concomitant]
  7. GARLIC. [Concomitant]
     Active Substance: GARLIC
  8. FISH OIL [Concomitant]
     Active Substance: FISH OIL
     Route: 048
  9. TOPROL XL [Suspect]
     Active Substance: METOPROLOL SUCCINATE
     Indication: HYPERTENSION
     Dosage: 50 MG IN AM AND 25 MG PM
     Route: 048
     Dates: start: 20020913, end: 201612
  10. TOPROL XL [Suspect]
     Active Substance: METOPROLOL SUCCINATE
     Indication: HYPERTENSION
     Dosage: 12.5 MG, IN MORNING AND IN THE EVENING
     Route: 048
     Dates: start: 20161222
  11. VITAMIN B6 [Concomitant]
     Active Substance: PYRIDOXINE HYDROCHLORIDE
  12. FUROSEMIDE. [Concomitant]
     Active Substance: FUROSEMIDE
     Indication: DIURETIC THERAPY
  13. TOPROL XL [Suspect]
     Active Substance: METOPROLOL SUCCINATE
     Indication: HYPERTENSION
     Dosage: 50 MG IN AM AND 25 MG PM
     Route: 048
     Dates: start: 20020913, end: 201612
  14. COSOPT [Concomitant]
     Active Substance: DORZOLAMIDE HYDROCHLORIDE\TIMOLOL MALEATE
  15. MULTIVITAMINS [Concomitant]
     Active Substance: VITAMINS
  16. PILOCARPINE EYE DROPS [Concomitant]
     Indication: GLAUCOMA

REACTIONS (16)
  - Angle closure glaucoma [Unknown]
  - Chapped lips [Not Recovered/Not Resolved]
  - Lip swelling [Not Recovered/Not Resolved]
  - Body height decreased [Not Recovered/Not Resolved]
  - Pain in extremity [Not Recovered/Not Resolved]
  - Product use issue [Not Recovered/Not Resolved]
  - Rash macular [Not Recovered/Not Resolved]
  - Swelling face [Not Recovered/Not Resolved]
  - Lip exfoliation [Not Recovered/Not Resolved]
  - Arthralgia [Not Recovered/Not Resolved]
  - Dizziness [Unknown]
  - Erythema of eyelid [Not Recovered/Not Resolved]
  - Musculoskeletal pain [Not Recovered/Not Resolved]
  - Gait disturbance [Not Recovered/Not Resolved]
  - Nerve degeneration [Unknown]
  - Blood cholesterol increased [Unknown]

NARRATIVE: CASE EVENT DATE: 200301
